FAERS Safety Report 24794917 (Version 1)
Quarter: 2024Q4

REPORT INFORMATION
  Report Type: Spontaneous
  Country: US (occurrence: US)
  Receive Date: 20241231
  Receipt Date: 20241231
  Transmission Date: 20250115
  Serious: No
  Sender: PFIZER
  Company Number: US-PFIZER INC-202400332085

PATIENT
  Age: 47 Year
  Sex: Female
  Weight: 93.89 kg

DRUGS (5)
  1. PRISTIQ EXTENDED-RELEASE [Suspect]
     Active Substance: DESVENLAFAXINE SUCCINATE
     Indication: Post-traumatic stress disorder
     Dosage: 25 MG (1 TABLET PER DOSE; CURRENTLY TAKES EVERY 2 DAYS, TOOK 1 LAST NIGHT)
     Dates: start: 202407
  2. PRISTIQ EXTENDED-RELEASE [Suspect]
     Active Substance: DESVENLAFAXINE SUCCINATE
     Indication: Anxiety
  3. TOPAMAX [Concomitant]
     Active Substance: TOPIRAMATE
     Indication: Anxiety
     Dosage: 100 MG, 2X/DAY (100 MG IN MORNING, 100 MG AT NIGHT; HAD BEEN TAKING MAYBE A YEAR)
  4. TOPAMAX [Concomitant]
     Active Substance: TOPIRAMATE
     Indication: Post-traumatic stress disorder
  5. KLONOPIN [Concomitant]
     Active Substance: CLONAZEPAM
     Indication: Anxiety
     Dosage: UNK, AS NEEDED (HALF MG, UP TO 3 TIMES A DAY, HAD BEEN TAKING MAYBE A YEAR)

REACTIONS (8)
  - Balance disorder [Unknown]
  - Pain [Unknown]
  - Joint stiffness [Unknown]
  - Nausea [Unknown]
  - Dizziness [Unknown]
  - Tremor [Unknown]
  - Drug withdrawal syndrome [Unknown]
  - Off label use [Unknown]

NARRATIVE: CASE EVENT DATE: 20240701
